FAERS Safety Report 17507161 (Version 1)
Quarter: 2020Q1

REPORT INFORMATION
  Report Type: Spontaneous
  Country: RU (occurrence: RU)
  Receive Date: 20200306
  Receipt Date: 20200306
  Transmission Date: 20200409
  Serious: Yes (Other)
  Sender: FDA-Public Use
  Company Number: RU-TEVA-2020-RU-1193433

PATIENT
  Age: 17 Year
  Sex: Female

DRUGS (1)
  1. TOPSAVER [Suspect]
     Active Substance: TOPIRAMATE
     Indication: EPILEPSY
     Dosage: DAILY DOSE - 175/175 MG, SINGLE DOSE -1/1 DOSE
     Route: 048
     Dates: start: 20161001, end: 20161101

REACTIONS (2)
  - Headache [Recovered/Resolved]
  - Sleep disorder [Recovered/Resolved]
